FAERS Safety Report 8460673-3 (Version None)
Quarter: 2012Q2

REPORT INFORMATION
  Report Type: 
  Country: None (occurrence: None)
  Receive Date: 20120622
  Receipt Date: 20120618
  Transmission Date: 20120825
  Serious: Yes (Other)
  Sender: FDA-Public Use
  Company Number: PHEH2012US010495

PATIENT
  Sex: Female

DRUGS (3)
  1. RECLAST [Suspect]
     Indication: OSTEOPOROSIS
     Dosage: 5 MG, YEARLY
     Route: 042
     Dates: start: 20111229
  2. CALCIUM WITH VITAMIN D [Concomitant]
     Dosage: 600/400 BID
     Route: 048
  3. PENTASA [Concomitant]
     Indication: COLITIS ULCERATIVE
     Dosage: 4 DF, BID
     Route: 048

REACTIONS (3)
  - BLINDNESS TRANSIENT [None]
  - NERVE INJURY [None]
  - HYPOAESTHESIA [None]
